FAERS Safety Report 10177772 (Version 2)
Quarter: 2014Q2

REPORT INFORMATION
  Report Type: Spontaneous
  Country: US (occurrence: US)
  Receive Date: 20140516
  Receipt Date: 20140520
  Transmission Date: 20141212
  Serious: Yes (Hospitalization, Other)
  Sender: FDA-Public Use
  Company Number: US-ABBVIE-14P-163-1235008-00

PATIENT
  Sex: Female
  Weight: 49.03 kg

DRUGS (10)
  1. HUMIRA [Suspect]
     Indication: RHEUMATOID ARTHRITIS
     Dates: start: 2002, end: 201312
  2. HUMIRA [Suspect]
     Dosage: DOSE DECREASED
  3. PREDNISONE [Concomitant]
     Indication: RHEUMATOID ARTHRITIS
  4. SYNTHROID [Concomitant]
     Indication: HYPOTHYROIDISM
  5. REQUIP [Concomitant]
     Indication: RESTLESS LEGS SYNDROME
  6. FOLIC ACID [Concomitant]
     Indication: VITAMIN SUPPLEMENTATION
  7. RESTORIL [Concomitant]
     Indication: INSOMNIA
  8. ALPRAZOLAM [Concomitant]
     Indication: ANXIETY
  9. ZYRTEC [Concomitant]
     Indication: SINUSITIS
  10. METHOTREXATE [Concomitant]
     Indication: RHEUMATOID ARTHRITIS

REACTIONS (12)
  - Umbilical hernia perforation [Recovered/Resolved]
  - Goitre [Recovered/Resolved]
  - Dysphagia [Recovered/Resolved]
  - Breast mass [Recovered/Resolved]
  - Axillary mass [Recovered/Resolved]
  - Hand deformity [Not Recovered/Not Resolved]
  - Surgical failure [Unknown]
  - Arthritis [Not Recovered/Not Resolved]
  - Fall [Not Recovered/Not Resolved]
  - Joint crepitation [Not Recovered/Not Resolved]
  - Furuncle [Recovered/Resolved]
  - Furuncle [Not Recovered/Not Resolved]
